FAERS Safety Report 8200061-8 (Version None)
Quarter: 2012Q1

REPORT INFORMATION
  Report Type: 
  Country: None (occurrence: None)
  Receive Date: 20120306
  Receipt Date: 20120223
  Transmission Date: 20120608
  Serious: Yes (Other)
  Sender: FDA-Public Use
  Company Number: TPA2011A06671

PATIENT
  Age: 76 Year
  Sex: Male

DRUGS (2)
  1. GLYBURIDE [Concomitant]
  2. ACTOS [Suspect]
     Indication: TYPE 2 DIABETES MELLITUS
     Dosage: 30 MG, 1 IN 1 D, PER ORAL
     Route: 048
     Dates: start: 20080117, end: 20110909

REACTIONS (2)
  - DISEASE RECURRENCE [None]
  - BLADDER CANCER [None]
